FAERS Safety Report 20442832 (Version 1)
Quarter: 2022Q1

REPORT INFORMATION
  Report Type: Spontaneous
  Country: US (occurrence: None)
  Receive Date: 20220207
  Receipt Date: 20220207
  Transmission Date: 20220423
  Serious: No
  Sender: FDA-Public Use
  Company Number: None

PATIENT
  Age: 60 Year
  Sex: Female

DRUGS (1)
  1. TAFINLAR [Suspect]
     Active Substance: DABRAFENIB MESYLATE
     Indication: Product used for unknown indication
     Dosage: FREQUENCY : DAILY;?
     Route: 048
     Dates: start: 20211220

REACTIONS (6)
  - Oedema peripheral [None]
  - Therapy interrupted [None]
  - Tremor [None]
  - Drug hypersensitivity [None]
  - Pyrexia [None]
  - Taste disorder [None]

NARRATIVE: CASE EVENT DATE: 20220131
